FAERS Safety Report 6562920-1 (Version None)
Quarter: 2010Q1

REPORT INFORMATION
  Report Type: 
  Country: None (occurrence: None)
  Receive Date: 20100130
  Receipt Date: 20091130
  Transmission Date: 20100710
  Serious: No
  Sender: FDA-Public Use
  Company Number: US-ABBOTT-09P-163-0611081-00

PATIENT
  Sex: Female
  Weight: 54.48 kg

DRUGS (2)
  1. HUMIRA [Suspect]
     Indication: RHEUMATOID ARTHRITIS
     Route: 058
     Dates: start: 20060101, end: 20091001
  2. HUMIRA [Suspect]
     Route: 058
     Dates: start: 20091001

REACTIONS (5)
  - ARTHRALGIA [None]
  - CELLULITIS [None]
  - FALL [None]
  - JOINT SWELLING [None]
  - RHEUMATOID NODULE [None]
